FAERS Safety Report 10736870 (Version 1)
Quarter: 2015Q1

REPORT INFORMATION
  Report Type: Spontaneous
  Country: US (occurrence: None)
  Receive Date: 20150122
  Receipt Date: 20150122
  Transmission Date: 20150721
  Serious: Yes (Death)
  Sender: FDA-Public Use
  Company Number: POI0573201500017

PATIENT
  Age: 66 Year
  Sex: Female

DRUGS (11)
  1. IBUPROFEN. [Suspect]
     Active Substance: IBUPROFEN
     Route: 048
     Dates: end: 2013
  2. THYROID PREPARATIONS [Suspect]
     Active Substance: UNSPECIFIED INGREDIENT
     Route: 048
     Dates: end: 2013
  3. CONJUGATED ESTROGENS [Suspect]
     Active Substance: ESTROGENS, CONJUGATED
     Route: 048
     Dates: end: 2013
  4. OXYBUTYNIN CHLORIDE EXTENDED-RELEASE TABLETS USP 5MG, 10MG AND 15MG (OXYBUTYNIN HYDROCHLORIDE) (TABLET) [Suspect]
     Active Substance: OXYBUTYNIN CHLORIDE
     Route: 048
     Dates: end: 2013
  5. LORAZEPAM. [Suspect]
     Active Substance: LORAZEPAM
     Route: 048
     Dates: end: 2013
  6. METFORMIN [Suspect]
     Active Substance: METFORMIN HYDROCHLORIDE
     Route: 048
     Dates: end: 2013
  7. BUPROPION [Suspect]
     Active Substance: BUPROPION
     Route: 048
     Dates: end: 2013
  8. TRAMADOL [Suspect]
     Active Substance: TRAMADOL
     Route: 048
     Dates: end: 2013
  9. GABAPENTIN. [Suspect]
     Active Substance: GABAPENTIN
     Route: 048
     Dates: end: 2013
  10. ACETAMINOPHEN/OXYCODONE [Suspect]
     Active Substance: ACETAMINOPHEN\OXYCODONE HYDROCHLORIDE
     Route: 048
     Dates: end: 2013
  11. DIPHENHYDRAMINE [Suspect]
     Active Substance: DIPHENHYDRAMINE
     Route: 048
     Dates: end: 2013

REACTIONS (1)
  - Completed suicide [None]

NARRATIVE: CASE EVENT DATE: 2013
